FAERS Safety Report 10166790 (Version 1)
Quarter: 2014Q2

REPORT INFORMATION
  Report Type: Spontaneous
  Country: US (occurrence: None)
  Receive Date: 20140508
  Receipt Date: 20140508
  Transmission Date: 20141212
  Serious: Yes (Death, Hospitalization)
  Sender: FDA-Public Use
  Company Number: 2014P1003682

PATIENT
  Age: 71 Year
  Sex: Male

DRUGS (15)
  1. INFUMORPH [Suspect]
     Indication: PAIN
     Route: 037
     Dates: start: 2009, end: 20140422
  2. INFUMORPH [Suspect]
     Indication: POST LAMINECTOMY SYNDROME
     Route: 037
     Dates: start: 2009, end: 20140422
  3. INFUMORPH [Suspect]
     Indication: SPINAL PAIN
     Route: 037
     Dates: start: 2009, end: 20140422
  4. PREDNISONE [Concomitant]
  5. ASA [Concomitant]
  6. PLAVIX [Concomitant]
  7. LASIX [Concomitant]
  8. GABAPENTIN [Concomitant]
  9. NITROSTAT [Concomitant]
  10. MIRAPEX [Concomitant]
  11. KCL [Concomitant]
  12. ZOCOR [Concomitant]
  13. FLOMAX [Concomitant]
  14. METOPROLOL [Concomitant]
  15. DURICEF [Concomitant]

REACTIONS (10)
  - Device battery issue [None]
  - Product size issue [None]
  - Skin irritation [None]
  - Respiratory distress [None]
  - Pulmonary fibrosis [None]
  - Post procedural complication [None]
  - General physical health deterioration [None]
  - Acute myocardial infarction [None]
  - Refusal of treatment by patient [None]
  - Coronary artery disease [None]
